FAERS Safety Report 4618170-9 (Version None)
Quarter: 2005Q2

REPORT INFORMATION
  Report Type: 
  Country: None (occurrence: None)
  Receive Date: 20050316
  Receipt Date: 20041208
  Transmission Date: 20051028
  Serious: Yes (Hospitalization)
  Sender: FDA-Public Use
  Company Number: S04-USA-07774-01

PATIENT
  Age: 75 Year
  Sex: Female

DRUGS (8)
  1. LEXAPRO [Suspect]
     Indication: DEPRESSION
     Dosage: 10 MG QD PO
     Route: 048
     Dates: start: 20041203, end: 20041203
  2. COUMADIN [Concomitant]
  3. LANOXIN [Concomitant]
  4. MIACALCIN [Concomitant]
  5. MACRODANTIN [Concomitant]
  6. COLACE (DOCUSATE SODIUM) [Concomitant]
  7. LACTULOSE [Concomitant]
  8. PEPCID [Concomitant]

REACTIONS (1)
  - SYNCOPE [None]
